FAERS Safety Report 18237297 (Version 2)
Quarter: 2020Q4

REPORT INFORMATION
  Report Type: Report from Study
  Country: US (occurrence: US)
  Receive Date: 20200907
  Receipt Date: 20201020
  Transmission Date: 20210113
  Serious: Yes (Hospitalization)
  Sender: FDA-Public Use
  Company Number: US-009507513-2009USA000448

PATIENT
  Age: 64 Year
  Sex: Male
  Weight: 120 kg

DRUGS (16)
  1. PEMBROLIZUMAB. [Suspect]
     Active Substance: PEMBROLIZUMAB
     Dosage: STRENGTH 200 MG
     Dates: start: 20200921, end: 20200921
  2. DECADRON [Concomitant]
     Active Substance: DEXAMETHASONE
     Dosage: 4 MG DAILY
  3. GABAPENTIN. [Concomitant]
     Active Substance: GABAPENTIN
     Dosage: 200 MG DAILY HS; HELD AT ADMISSION
     Dates: end: 202008
  4. PEMBROLIZUMAB. [Suspect]
     Active Substance: PEMBROLIZUMAB
     Indication: GLIOBLASTOMA
     Dosage: STRENGTH 200 MG
     Dates: start: 20200810, end: 2020
  5. TEMOZOLOMIDE. [Suspect]
     Active Substance: TEMOZOLOMIDE
     Indication: GLIOBLASTOMA
     Dosage: STRENGTH: 180 MG
     Dates: start: 20200817, end: 20200828
  6. COMPAZINE (PROCHLORPERAZINE EDISYLATE) [Concomitant]
     Active Substance: PROCHLORPERAZINE EDISYLATE
     Dosage: 10 MG DAILY, PRN
  7. TRAZODONE HYDROCHLORIDE. [Concomitant]
     Active Substance: TRAZODONE HYDROCHLORIDE
     Dosage: 50 MG DAILY, HS
  8. FAMOTIDINE. [Concomitant]
     Active Substance: FAMOTIDINE
     Dosage: 1 TABLET, BID
  9. NAMENDA [Concomitant]
     Active Substance: MEMANTINE HYDROCHLORIDE
     Dosage: 30 MILLIGRAM DAILY; HELD AT THE ADMISSION
     Dates: end: 202008
  10. LEVETIRACETAM. [Concomitant]
     Active Substance: LEVETIRACETAM
     Dosage: 1500 MILLIGRAM DAILY
  11. SENNOSIDES. [Concomitant]
     Active Substance: SENNOSIDES
     Dosage: 8.6 MILLIGRAM DAILY, PRN
  12. SODIUM CHLORIDE. [Concomitant]
     Active Substance: SODIUM CHLORIDE
     Dosage: 1 SPRAY EACH NOSTRIL, PRN
  13. ANTIVERT (OLD FORMULA) [Concomitant]
     Dosage: 25 MG DAILY, PRN; HELD AT THE ADMISSION
     Dates: end: 202008
  14. DAPSONE. [Concomitant]
     Active Substance: DAPSONE
     Dosage: 100 MG DAILY
  15. ONDANSETRON [Concomitant]
     Active Substance: ONDANSETRON
     Dosage: 8 MG DAILY WITH TEMODAR/ NOT TAKING WHILE HOLDING TEMODAR
     Dates: start: 20200817, end: 202008
  16. POLYETHYLENE GLYCOL 3350. [Concomitant]
     Active Substance: POLYETHYLENE GLYCOL 3350
     Dosage: 17 GRAM DAILY, PRN

REACTIONS (4)
  - Tachypnoea [Unknown]
  - Pyrexia [Recovered/Resolved]
  - Hypoxia [Unknown]
  - Confusional state [Unknown]

NARRATIVE: CASE EVENT DATE: 20200829
